FAERS Safety Report 8346363-6 (Version None)
Quarter: 2012Q2

REPORT INFORMATION
  Report Type: 
  Country: None (occurrence: None)
  Receive Date: 20120509
  Receipt Date: 20111219
  Transmission Date: 20120825
  Serious: No
  Sender: FDA-Public Use
  Company Number: US-MYLANLABS-2011S1026134

PATIENT
  Age: 34 Year
  Sex: Female

DRUGS (1)
  1. ACEBUTOLOL HCL [Suspect]
     Indication: ARRHYTHMIA
     Route: 048
     Dates: start: 20111205

REACTIONS (4)
  - SWELLING [None]
  - NAUSEA [None]
  - ABNORMAL DREAMS [None]
  - ABDOMINAL DISTENSION [None]
